FAERS Safety Report 21979549 (Version 4)
Quarter: 2023Q2

REPORT INFORMATION
  Report Type: Spontaneous
  Country: US (occurrence: US)
  Receive Date: 20230210
  Receipt Date: 20230505
  Transmission Date: 20230721
  Serious: Yes (Other)
  Sender: FDA-Public Use
  Company Number: US-BRISTOL-MYERS SQUIBB COMPANY-2023-020283

PATIENT
  Age: 85 Year
  Sex: Female
  Weight: 74.84 kg

DRUGS (2)
  1. REVLIMID [Suspect]
     Active Substance: LENALIDOMIDE
     Indication: Plasma cell myeloma
     Dosage: 25 MG DAILY X 21 DAYS, EVERY 28 DAYS
     Route: 048
     Dates: start: 20230121
  2. REVLIMID [Suspect]
     Active Substance: LENALIDOMIDE
     Dosage: D 1-21 Q 28 DAYS
     Route: 048
     Dates: start: 20230216, end: 202303

REACTIONS (3)
  - Neutropenia [Recovering/Resolving]
  - Back pain [Unknown]
  - Drug intolerance [Not Recovered/Not Resolved]
